FAERS Safety Report 11786100 (Version 1)
Quarter: 2015Q4

REPORT INFORMATION
  Report Type: Spontaneous
  Country: US (occurrence: None)
  Receive Date: 20151125
  Receipt Date: 20151125
  Transmission Date: 20160305
  Serious: No
  Sender: FDA-Public Use
  Company Number: None

PATIENT
  Age: 62 Year
  Sex: Male

DRUGS (2)
  1. RIBAVIRIN. [Suspect]
     Active Substance: RIBAVIRIN
     Indication: HEPATITIS C
     Route: 048
     Dates: start: 20151023
  2. SOFOSBUVIR [Suspect]
     Active Substance: SOFOSBUVIR
     Indication: HEPATITIS C
     Route: 048
     Dates: start: 20150930

REACTIONS (9)
  - Skin exfoliation [None]
  - Vomiting [None]
  - Fatigue [None]
  - Headache [None]
  - Nausea [None]
  - Burning sensation [None]
  - Myalgia [None]
  - Rash [None]
  - Blister [None]

NARRATIVE: CASE EVENT DATE: 20150930
